FAERS Safety Report 15305193 (Version 1)
Quarter: 2018Q3

REPORT INFORMATION
  Report Type: Spontaneous
  Country: US (occurrence: US)
  Receive Date: 20180810
  Receipt Date: 20180810
  Transmission Date: 20181010
  Serious: Yes (Other)
  Sender: FDA-Public Use
  Company Number: None

PATIENT
  Age: 63 Year
  Sex: Male
  Weight: 90 kg

DRUGS (2)
  1. PERFLUTREN [Suspect]
     Active Substance: PERFLUTREN
     Indication: ECHOCARDIOGRAM
     Route: 042
     Dates: start: 20170919, end: 20170919
  2. PERFLUTREN [Suspect]
     Active Substance: PERFLUTREN
     Indication: SCAN WITH CONTRAST
     Route: 042
     Dates: start: 20170919, end: 20170919

REACTIONS (3)
  - Pain in extremity [None]
  - Back pain [None]
  - Neck pain [None]

NARRATIVE: CASE EVENT DATE: 20170919
